FAERS Safety Report 5082378-1 (Version None)
Quarter: 2006Q3

REPORT INFORMATION
  Report Type: 
  Country: None (occurrence: None)
  Receive Date: 20060814
  Receipt Date: 20060724
  Transmission Date: 20061208
  Serious: Yes (Hospitalization)
  Sender: FDA-Public Use
  Company Number: CAR-2006-018

PATIENT
  Age: 77 Year
  Sex: Male

DRUGS (9)
  1. SUCRALFATE [Suspect]
     Indication: COLITIS COLLAGENOUS
     Dosage: 1 TABLET
     Dates: start: 20060720
  2. CADUET [Concomitant]
  3. NORVASC [Concomitant]
  4. LIPITOR [Concomitant]
  5. TOPROL-XL [Concomitant]
  6. ACCUPRIL [Concomitant]
  7. DIOVAN [Concomitant]
  8. GLUCOPHAGE [Concomitant]
  9. ENTOCORT [Concomitant]

REACTIONS (7)
  - CHILLS [None]
  - COUGH [None]
  - LETHARGY [None]
  - PETECHIAE [None]
  - PYREXIA [None]
  - RASH ERYTHEMATOUS [None]
  - TREMOR [None]
